FAERS Safety Report 17034905 (Version 1)
Quarter: 2019Q4

REPORT INFORMATION
  Report Type: Report from Study
  Country: GB (occurrence: GB)
  Receive Date: 20191115
  Receipt Date: 20191115
  Transmission Date: 20200122
  Serious: Yes (Other)
  Sender: FDA-Public Use
  Company Number: GB-GLAXOSMITHKLINE-GB2019TSO206117

PATIENT
  Age: 58 Year
  Sex: Female

DRUGS (1)
  1. NIRAPARIB [Suspect]
     Active Substance: NIRAPARIB
     Indication: OVARIAN CANCER
     Dosage: 300 MG, QD, SECOND LINE MAINTENANCE (MAINTENANCE THERAPY FOLLOWING SECOND LINE TREATMENT)

REACTIONS (3)
  - Disease progression [Unknown]
  - Drug ineffective [Unknown]
  - Recurrent cancer [Unknown]
